FAERS Safety Report 8313442-9 (Version None)
Quarter: 2012Q2

REPORT INFORMATION
  Report Type: 
  Country: None (occurrence: None)
  Receive Date: 20120426
  Receipt Date: 20120423
  Transmission Date: 20120825
  Serious: Yes (Hospitalization)
  Sender: FDA-Public Use
  Company Number: PHHO2012IT006399

PATIENT
  Sex: Male
  Weight: 52 kg

DRUGS (1)
  1. TASIGNA [Suspect]
     Indication: CHRONIC MYELOID LEUKAEMIA
     Dosage: 450 MG, BID
     Route: 048
     Dates: start: 20100917, end: 20120411

REACTIONS (1)
  - HEPATIC FIBROSIS [None]
